FAERS Safety Report 6428183-2 (Version None)
Quarter: 2009Q4

REPORT INFORMATION
  Report Type: 
  Country: None (occurrence: None)
  Receive Date: 20091102
  Receipt Date: 20091022
  Transmission Date: 20100525
  Serious: Yes (Life-Threatening, Hospitalization)
  Sender: FDA-Public Use
  Company Number: 89820

PATIENT
  Age: 35 Year
  Sex: Female

DRUGS (1)
  1. RANITIDINE [Suspect]
     Indication: DIARRHOEA
     Dosage: 100MG/IV
     Route: 042

REACTIONS (2)
  - CARDIAC ARREST [None]
  - VENTRICULAR ARRHYTHMIA [None]
